FAERS Safety Report 17735451 (Version 1)
Quarter: 2020Q2

REPORT INFORMATION
  Report Type: Report from Study
  Country: NL (occurrence: NL)
  Receive Date: 20200501
  Receipt Date: 20200501
  Transmission Date: 20200714
  Serious: Yes (Hospitalization, Other)
  Sender: FDA-Public Use
  Company Number: NL-MYLANLABS-2020M1043302

PATIENT
  Age: 82 Year
  Sex: Male

DRUGS (14)
  1. ABIRATERONA [Concomitant]
     Active Substance: ABIRATERONE
     Dosage: 500 MILLIGRAM, 1D2T
  2. CHLORTHALIDONE. [Concomitant]
     Active Substance: CHLORTHALIDONE
     Dosage: 25 MILLIGRAM, QD
     Route: 065
  3. DUTASTERIDE. [Concomitant]
     Active Substance: DUTASTERIDE
     Dosage: 0.5 MILLIGRAM, QD
     Route: 065
  4. ISOSORBIDE MONONITE [Concomitant]
     Dosage: 30 MILLIGRAM, QD
     Route: 065
  5. DABIGATRAN ETEXILATE [Concomitant]
     Active Substance: DABIGATRAN ETEXILATE
     Dosage: 110 MILLIGRAM, QOD
  6. PREDNISOLONE. [Suspect]
     Active Substance: PREDNISOLONE
     Indication: PRODUCT USED FOR UNKNOWN INDICATION
     Dosage: 5 MILLIGRAM, 2D1T
     Route: 065
  7. XGEVA [Suspect]
     Active Substance: DENOSUMAB
     Indication: PROPHYLAXIS
     Dosage: 120 MILLIGRAM IN 1.7 ML, 1X12W 1INJ
     Route: 065
  8. MACROGOL [Concomitant]
     Active Substance: POLYETHYLENE GLYCOLS
     Dosage: (MOVIC/MOLAX/LAXT/GEN) 2D1SA
     Route: 065
  9. DABIGATRAN ETEXILATE [Concomitant]
     Active Substance: DABIGATRAN ETEXILATE
     Dosage: 0.5 UNK
  10. DABIGATRAN ETEXILATE [Concomitant]
     Active Substance: DABIGATRAN ETEXILATE
     Dosage: 150MG, 2D1C
  11. HYDROCORTISON                      /00028601/ [Concomitant]
     Active Substance: HYDROCORTISONE
     Dosage: 100 UNK
  12. CIPROFLOXACIN. [Concomitant]
     Active Substance: CIPROFLOXACIN
     Dosage: 500 MILLIGRAM, QOD
  13. METOPROLOL. [Concomitant]
     Active Substance: METOPROLOL
     Dosage: 100 MILLIGRAM, QD
     Route: 065
  14. HYDROCORTISON                      /00028601/ [Concomitant]
     Active Substance: HYDROCORTISONE
     Dosage: 20 MILLIGRAM, QOD

REACTIONS (2)
  - Hypokalaemia [Recovered/Resolved]
  - Hyponatraemia [Recovered/Resolved]

NARRATIVE: CASE EVENT DATE: 20200320
